FAERS Safety Report 11918413 (Version 1)
Quarter: 2016Q1

REPORT INFORMATION
  Report Type: Spontaneous
  Country: CN (occurrence: CN)
  Receive Date: 20160115
  Receipt Date: 20160115
  Transmission Date: 20160526
  Serious: Yes (Other)
  Sender: FDA-Public Use
  Company Number: CN-ROCHE-1694189

PATIENT
  Age: 19 Year
  Sex: Male
  Weight: 52 kg

DRUGS (2)
  1. PEGASYS [Suspect]
     Active Substance: PEGINTERFERON ALFA-2A
     Indication: CHRONIC HEPATITIS C
     Route: 058
     Dates: start: 20150612, end: 20150630
  2. RIBAVIRIN. [Suspect]
     Active Substance: RIBAVIRIN
     Indication: CHRONIC HEPATITIS C
     Route: 048
     Dates: start: 20150612, end: 20150630

REACTIONS (2)
  - Bone marrow failure [Recovered/Resolved]
  - Agranulocytosis [Unknown]

NARRATIVE: CASE EVENT DATE: 20150626
